FAERS Safety Report 21919938 (Version 5)
Quarter: 2023Q1

REPORT INFORMATION
  Report Type: Spontaneous
  Country: GR (occurrence: GR)
  Receive Date: 20230127
  Receipt Date: 20230329
  Transmission Date: 20230418
  Serious: No
  Sender: FDA-Public Use
  Company Number: GR-PFIZER INC-PV202300010198

PATIENT
  Age: 15 Year
  Sex: Male
  Weight: 47 kg

DRUGS (2)
  1. GENOTROPIN [Suspect]
     Active Substance: SOMATROPIN
     Indication: Growth hormone deficiency
     Dosage: 9MG, WEEKLY WITH ONE DAY OFF/6 DAYS
     Route: 058
     Dates: start: 20221228
  2. GENOTROPIN [Suspect]
     Active Substance: SOMATROPIN
     Indication: Growth hormone deficiency
     Dosage: 9MG, WEEKLY WITH ONE DAY OFF/6 DAYS/ PEN 12 MG
     Route: 058
     Dates: start: 20221228

REACTIONS (2)
  - Wrong technique in device usage process [Unknown]
  - Drug dose omission by device [Unknown]

NARRATIVE: CASE EVENT DATE: 20230110
